FAERS Safety Report 7203546-6 (Version None)
Quarter: 2010Q4

REPORT INFORMATION
  Report Type: 
  Country: None (occurrence: None)
  Receive Date: 20101230
  Receipt Date: 20101222
  Transmission Date: 20110411
  Serious: Yes (Hospitalization, Other)
  Sender: FDA-Public Use
  Company Number: CA-ASTELLAS-2010US005235

PATIENT

DRUGS (4)
  1. PROGRAF [Suspect]
     Indication: RENAL TRANSPLANT
     Dosage: UNK
     Route: 065
     Dates: start: 20060601, end: 20070101
  2. PROGRAF [Suspect]
     Dosage: UNK
     Route: 065
     Dates: start: 20070101, end: 20090101
  3. MYCOPHENOLATE MOFETIL [Concomitant]
     Indication: RENAL TRANSPLANT
     Dosage: UNK
     Route: 065
     Dates: start: 20060601
  4. ENALAPRIL MALEATE [Concomitant]
     Indication: PRODUCT USED FOR UNKNOWN INDICATION
     Dosage: UNK
     Route: 065

REACTIONS (4)
  - KIDNEY TRANSPLANT REJECTION [None]
  - NEPHROCALCINOSIS [None]
  - RENAL IMPAIRMENT [None]
  - SCLEROSING ENCAPSULATING PERITONITIS [None]
